FAERS Safety Report 12418946 (Version 1)
Quarter: 2016Q2

REPORT INFORMATION
  Report Type: Spontaneous
  Country: US (occurrence: US)
  Receive Date: 20160531
  Receipt Date: 20160531
  Transmission Date: 20160815
  Serious: No
  Sender: FDA-Public Use
  Company Number: US-BAYER-2016-098544

PATIENT
  Age: 75 Year
  Sex: Male
  Weight: 72.11 kg

DRUGS (3)
  1. LAXATIVE [Concomitant]
     Active Substance: UNSPECIFIED INGREDIENT
  2. MIRALAX [Suspect]
     Active Substance: POLYETHYLENE GLYCOL 3350
     Indication: GASTROINTESTINAL DISORDER
     Dosage: 1 DF, QD
     Route: 048
     Dates: start: 2012, end: 2015
  3. MIRALAX [Suspect]
     Active Substance: POLYETHYLENE GLYCOL 3350
     Indication: GASTROINTESTINAL DISORDER
     Dosage: 2 OR 3 DAYS IN A ROW BUT NOT LESS THAN EVERY OTHER DAY
     Route: 048
     Dates: start: 2015

REACTIONS (3)
  - Product use issue [None]
  - Product use issue [None]
  - Drug prescribing error [None]

NARRATIVE: CASE EVENT DATE: 2012
